FAERS Safety Report 13778447 (Version 1)
Quarter: 2017Q3

REPORT INFORMATION
  Report Type: Spontaneous
  Country: BE (occurrence: BE)
  Receive Date: 20170721
  Receipt Date: 20170721
  Transmission Date: 20171127
  Serious: Yes (Hospitalization)
  Sender: FDA-Public Use
  Company Number: BE-ACCORD-055981

PATIENT
  Age: 11 Year
  Sex: Male

DRUGS (8)
  1. VINCRISTINE [Concomitant]
     Active Substance: VINCRISTINE
     Indication: ACUTE LYMPHOCYTIC LEUKAEMIA
  2. DAUNORUBICIN [Concomitant]
     Active Substance: DAUNORUBICIN
     Indication: ACUTE LYMPHOCYTIC LEUKAEMIA
  3. FOLIC ACID. [Concomitant]
     Active Substance: FOLIC ACID
  4. CYCLOPHOSPHAMIDE/CYCLOPHOSPHAMIDE MONOHYDRATE [Concomitant]
     Indication: ACUTE LYMPHOCYTIC LEUKAEMIA
  5. METHOTREXATE. [Concomitant]
     Active Substance: METHOTREXATE
     Dosage: DOSE: 5 G/M2 ?HIGH DOSE
  6. ONDANSETRON [Suspect]
     Active Substance: ONDANSETRON
     Indication: ANTIEMETIC SUPPORTIVE CARE
     Dosage: DOSE: 5 MG/M2 , INTRAVENOUSLY TWICE DAILY,?FURTHER FOR THREE DAYS AFTER THE LAST CHEMOTHERAPY
     Route: 042
  7. DIPIPERON [Interacting]
     Active Substance: PIPAMPERONE
     Indication: REACTIVE ATTACHMENT DISORDER OF INFANCY OR EARLY CHILDHOOD
     Dosage: DOSE: 10 MG IN THE MORNING AND 20 MG IN THE EVENING AND WAS CONTINUE DURING THE ENTIRE COURSE OF ALL
  8. UROMITEXAN [Concomitant]
     Active Substance: MESNA
     Indication: ACUTE LYMPHOCYTIC LEUKAEMIA

REACTIONS (2)
  - Electrocardiogram QT prolonged [Recovering/Resolving]
  - Drug interaction [Unknown]
